FAERS Safety Report 17934955 (Version 1)
Quarter: 2020Q2

REPORT INFORMATION
  Report Type: Spontaneous
  Country: US (occurrence: US)
  Receive Date: 20200622
  Receipt Date: 20200622
  Transmission Date: 20200714
  Serious: No
  Sender: FDA-Public Use
  Company Number: None

PATIENT
  Age: 73 Year
  Sex: Female
  Weight: 64.35 kg

DRUGS (1)
  1. SKINDOM HAND CLEAN [Suspect]
     Active Substance: ALCOHOL
     Route: 061

REACTIONS (3)
  - Product formulation issue [None]
  - Physical product label issue [None]
  - Product label confusion [None]

NARRATIVE: CASE EVENT DATE: 20200622
